FAERS Safety Report 10536846 (Version 1)
Quarter: 2014Q4

REPORT INFORMATION
  Report Type: Spontaneous
  Country: US (occurrence: US)
  Receive Date: 20141022
  Receipt Date: 20141022
  Transmission Date: 20150529
  Serious: Yes (Death)
  Sender: FDA-Public Use
  Company Number: US-RB PHARMACEUTICALS LIMITED-RB-70526-2014

PATIENT

DRUGS (1)
  1. BUPRENORPHINE/NALOXONE BRAND UNSPECIFIED [Suspect]
     Active Substance: BUPRENORPHINE\NALOXONE
     Indication: PRODUCT USED FOR UNKNOWN INDICATION
     Dosage: UNKNOWN
     Route: 065
     Dates: start: 2012, end: 2012

REACTIONS (1)
  - Accidental exposure to product by child [Fatal]

NARRATIVE: CASE EVENT DATE: 2012
